FAERS Safety Report 19865345 (Version 1)
Quarter: 2021Q3

REPORT INFORMATION
  Report Type: Spontaneous
  Country: US (occurrence: US)
  Receive Date: 20210921
  Receipt Date: 20210921
  Transmission Date: 20211014
  Serious: No
  Sender: FDA-Public Use
  Company Number: None

PATIENT
  Age: 42 Year
  Sex: Male

DRUGS (1)
  1. TABRECTA [Suspect]
     Active Substance: CAPMATINIB
     Route: 048
     Dates: start: 202109

REACTIONS (9)
  - Asthenia [None]
  - Vomiting [None]
  - Ageusia [None]
  - Fatigue [None]
  - Seizure [None]
  - Nausea [None]
  - Pain in extremity [None]
  - Cough [None]
  - Abdominal pain upper [None]

NARRATIVE: CASE EVENT DATE: 20210919
